FAERS Safety Report 15387976 (Version 3)
Quarter: 2020Q3

REPORT INFORMATION
  Report Type: Spontaneous
  Country: US (occurrence: CA)
  Receive Date: 20180915
  Receipt Date: 20200929
  Transmission Date: 20201102
  Serious: No
  Sender: FDA-Public Use
  Company Number: CA-BRISTOL-MYERS SQUIBB COMPANY-BMS-2018-080058

PATIENT
  Age: 81 Year
  Sex: Female

DRUGS (1)
  1. HYDROXYUREA. [Suspect]
     Active Substance: HYDROXYUREA
     Indication: EOSINOPHILIA
     Dosage: 500 MG, UNK
     Route: 065

REACTIONS (1)
  - No adverse event [Unknown]
